FAERS Safety Report 7777437-6 (Version None)
Quarter: 2011Q3

REPORT INFORMATION
  Report Type: 
  Country: None (occurrence: None)
  Receive Date: 20110926
  Receipt Date: 20110920
  Transmission Date: 20111222
  Serious: Yes (Other)
  Sender: FDA-Public Use
  Company Number: US-JNJFOC-20110812603

PATIENT
  Age: 29 Year
  Sex: Male

DRUGS (4)
  1. WARFARIN SODIUM [Suspect]
     Indication: ANTICOAGULANT THERAPY
     Route: 048
     Dates: start: 20110820, end: 20110820
  2. WARFARIN SODIUM [Suspect]
     Route: 048
  3. XARELTO [Suspect]
     Indication: ANTICOAGULANT THERAPY
     Route: 048
     Dates: start: 20110820
  4. WARFARIN SODIUM [Suspect]
     Route: 048
     Dates: start: 20110821

REACTIONS (1)
  - INTERNATIONAL NORMALISED RATIO INCREASED [None]
